FAERS Safety Report 5503286-5 (Version None)
Quarter: 2007Q4

REPORT INFORMATION
  Report Type: 
  Country: None (occurrence: None)
  Receive Date: 20071031
  Receipt Date: 20071024
  Transmission Date: 20080405
  Serious: Yes (Other)
  Sender: FDA-Public Use
  Company Number: FR-ROXANE LABORATORIES, INC-2007-BP-23257RO

PATIENT
  Age: 68 Year
  Sex: Male

DRUGS (4)
  1. CYCLOPHOSPHAMIDE [Suspect]
     Indication: CHRONIC LYMPHOCYTIC LEUKAEMIA
     Route: 048
     Dates: start: 20030901, end: 20040201
  2. FLUDARABINE PHOSPHATE [Suspect]
     Indication: CHRONIC LYMPHOCYTIC LEUKAEMIA
     Route: 048
     Dates: start: 20030901, end: 20040201
  3. CAMPATH [Suspect]
     Indication: CHRONIC LYMPHOCYTIC LEUKAEMIA
     Route: 058
     Dates: start: 20060401, end: 20060601
  4. IMMUNOGLOBULINS [Concomitant]
     Route: 042

REACTIONS (6)
  - APLASIA PURE RED CELL [None]
  - DISEASE RECURRENCE [None]
  - EPSTEIN-BARR VIRUS TEST POSITIVE [None]
  - ERYTHEMA INFECTIOSUM [None]
  - HEPATITIS ACUTE [None]
  - LYMPHOPROLIFERATIVE DISORDER [None]
